FAERS Safety Report 7728263-5 (Version None)
Quarter: 2011Q3

REPORT INFORMATION
  Report Type: 
  Country: None (occurrence: None)
  Receive Date: 20110905
  Receipt Date: 20110829
  Transmission Date: 20111222
  Serious: Yes (Other)
  Sender: FDA-Public Use
  Company Number: PHHY2011NL60386

PATIENT
  Sex: Male

DRUGS (15)
  1. ASCAL [Concomitant]
     Dosage: UNK UKN, UNK
  2. ESTRACYT [Concomitant]
     Dosage: UNK UKN, UNK
  3. PREDNISOLONE [Concomitant]
     Dosage: UNK UKN, UNK
  4. ZOMETA [Suspect]
     Dosage: 4 MG/5ML, CONCENTRATE FOR SOLUTION FOR INTRAVENOUS INFUSION ONCE PER 28 DAYS
     Route: 042
     Dates: start: 20110607
  5. ZOLADEX [Concomitant]
     Dosage: UNK UKN, UNK
  6. TAMSULOSIN HCL [Concomitant]
     Dosage: UNK UKN, UNK
  7. CASODEX [Concomitant]
     Dosage: UNK UKN, UNK
  8. ZOMETA [Suspect]
     Indication: PROSTATE CANCER METASTATIC
     Dosage: 4 MG
     Route: 042
     Dates: start: 20100921
  9. ROSUVASTATIN CALCIUM [Concomitant]
     Dosage: UNK UKN, UNK
  10. HYDROCHLOROTHIAZIDE [Concomitant]
     Dosage: UNK UKN, UNK
  11. CALCICHEW [Concomitant]
     Dosage: UNK UKN, UNK
  12. METAMUCIL-2 [Concomitant]
     Dosage: UNK UKN, UNK
  13. ZOMETA [Suspect]
     Dosage: 4 MG/5ML, CONCENTRATE FOR SOLUTION FOR INTRAVENOUS INFUSION ONCE PER 28 DAYS
     Route: 042
     Dates: start: 20110705
  14. ZOMETA [Suspect]
     Dosage: 4 MG/5ML, CONCENTRATE FOR SOLUTION FOR INTRAVENOUS INFUSION ONCE PER 28 DAYS
     Route: 042
     Dates: start: 20110802
  15. METOPROLOL SUCCINATE [Concomitant]
     Dosage: UNK UKN, UNK

REACTIONS (6)
  - FATIGUE [None]
  - BACK PAIN [None]
  - MALAISE [None]
  - DEPRESSION [None]
  - GAIT DISTURBANCE [None]
  - ASTHENIA [None]
